FAERS Safety Report 15149405 (Version 2)
Quarter: 2018Q3

REPORT INFORMATION
  Report Type: Spontaneous
  Country: NL (occurrence: NL)
  Receive Date: 20180716
  Receipt Date: 20180801
  Transmission Date: 20181010
  Serious: Yes (Hospitalization, Other)
  Sender: FDA-Public Use
  Company Number: NL-IPSEN BIOPHARMACEUTICALS, INC.-2018-10311

PATIENT
  Age: 77 Year
  Sex: Male
  Weight: 97.9 kg

DRUGS (10)
  1. KETOCONAZOLE. [Concomitant]
     Active Substance: KETOCONAZOLE
     Indication: ANTIFUNGAL PROPHYLAXIS
     Route: 061
     Dates: start: 20150403
  2. METOPROLOL. [Concomitant]
     Active Substance: METOPROLOL
     Indication: HYPERTENSION
     Route: 048
     Dates: start: 20141022
  3. TAMSULOSINE [Concomitant]
     Active Substance: TAMSULOSIN HYDROCHLORIDE
     Indication: BENIGN PROSTATIC HYPERPLASIA
     Route: 048
     Dates: start: 20141022
  4. AMLODIPINE [Concomitant]
     Active Substance: AMLODIPINE BESYLATE
     Indication: HYPERTENSION
     Route: 048
     Dates: start: 20121210
  5. SOMATULINE AUTOSOLUTION 90MG [Suspect]
     Active Substance: LANREOTIDE ACETATE
     Indication: NEUROENDOCRINE TUMOUR
     Dosage: 90 MG
     Route: 058
     Dates: start: 20150102
  6. FENPROCOUMON [Concomitant]
     Active Substance: PHENPROCOUMON
     Indication: THROMBOSIS PROPHYLAXIS
     Route: 048
     Dates: start: 20121112
  7. LX1606 [Concomitant]
     Indication: CARCINOID SYNDROME
     Route: 048
     Dates: start: 20160324
  8. TELMISARTAN. [Concomitant]
     Active Substance: TELMISARTAN
     Indication: HYPERTENSION
     Route: 048
     Dates: start: 20141020
  9. GOSERELIN IMPLANTATION MARKER [Concomitant]
     Indication: PROSTATE EXAMINATION ABNORMAL
     Route: 058
     Dates: start: 20180108
  10. SIMVASTATIN. [Concomitant]
     Active Substance: SIMVASTATIN
     Indication: HYPERCHOLESTEROLAEMIA
     Route: 048
     Dates: start: 20141020

REACTIONS (3)
  - Pancreatic failure [Unknown]
  - Dry skin [Unknown]
  - Neoplasm progression [Recovered/Resolved]
